FAERS Safety Report 15643973 (Version 1)
Quarter: 2018Q4

REPORT INFORMATION
  Report Type: Spontaneous
  Country: US (occurrence: US)
  Receive Date: 20181121
  Receipt Date: 20181121
  Transmission Date: 20190205
  Serious: No
  Sender: FDA-Public Use
  Company Number: US-BAYER-2018-214881

PATIENT
  Age: 73 Year
  Sex: Male

DRUGS (1)
  1. ALEVE [Suspect]
     Active Substance: NAPROXEN SODIUM
     Indication: PAIN
     Dosage: SOMETIMES I TAKE 2 CAPLETS SAME TIME.
     Route: 048

REACTIONS (4)
  - Product use issue [Unknown]
  - Balance disorder [Unknown]
  - Drug ineffective [Unknown]
  - Dizziness [Unknown]
